FAERS Safety Report 13979411 (Version 1)
Quarter: 2017Q3

REPORT INFORMATION
  Report Type: Spontaneous
  Country: US (occurrence: US)
  Receive Date: 20170914
  Receipt Date: 20170914
  Transmission Date: 20171128
  Serious: No
  Sender: FDA-Public Use
  Company Number: US-ASTELLAS-2017US010021

PATIENT
  Age: 62 Year
  Sex: Male

DRUGS (1)
  1. XTANDI [Suspect]
     Active Substance: ENZALUTAMIDE
     Indication: HORMONE-REFRACTORY PROSTATE CANCER
     Dosage: 160 MG, ONCE DAILY, TAKE 4 CAPSULES
     Route: 048

REACTIONS (6)
  - Lacrimation increased [Unknown]
  - Onychomadesis [Unknown]
  - Fatigue [Unknown]
  - Neuropathy peripheral [Unknown]
  - Gingival swelling [Unknown]
  - Nail discolouration [Unknown]

NARRATIVE: CASE EVENT DATE: 20170211
